FAERS Safety Report 13608428 (Version 4)
Quarter: 2017Q3

REPORT INFORMATION
  Report Type: Report from Study
  Country: CA (occurrence: CA)
  Receive Date: 20170602
  Receipt Date: 20170922
  Transmission Date: 20171127
  Serious: Yes (Hospitalization)
  Sender: FDA-Public Use
  Company Number: CA-JNJFOC-20170516227

PATIENT
  Sex: Male

DRUGS (8)
  1. STELARA [Suspect]
     Active Substance: USTEKINUMAB
     Indication: CROHN^S DISEASE
     Route: 042
     Dates: start: 2017
  2. SOLU-MEDROL [Concomitant]
     Active Substance: METHYLPREDNISOLONE SODIUM SUCCINATE
     Route: 065
  3. PANTOPRAZOLE [Concomitant]
     Active Substance: PANTOPRAZOLE
     Route: 065
  4. LORAZEPAM. [Concomitant]
     Active Substance: LORAZEPAM
     Route: 065
  5. MORPHINE [Suspect]
     Active Substance: MORPHINE
     Indication: PAIN
     Route: 065
  6. STELARA [Suspect]
     Active Substance: USTEKINUMAB
     Indication: CROHN^S DISEASE
     Dosage: START DATE WAS ALSO REPORTED AS 03-MAY-2017
     Route: 042
     Dates: start: 20170502
  7. AMLODIPINE [Concomitant]
     Active Substance: AMLODIPINE BESYLATE
     Route: 065
  8. ADVAIR HFA [Concomitant]
     Active Substance: FLUTICASONE PROPIONATE\SALMETEROL XINAFOATE
     Route: 065

REACTIONS (16)
  - Malaise [Unknown]
  - Drug ineffective [Recovering/Resolving]
  - Loss of consciousness [Unknown]
  - Dyspnoea [Unknown]
  - Crohn^s disease [Recovering/Resolving]
  - Hypertension [Unknown]
  - Urinary tract infection [Unknown]
  - Somnolence [Unknown]
  - Dry skin [Unknown]
  - Syncope [Not Recovered/Not Resolved]
  - Disorientation [Unknown]
  - Haemoglobin decreased [Recovering/Resolving]
  - Dehydration [Not Recovered/Not Resolved]
  - Chromaturia [Recovered/Resolved]
  - Urine output decreased [Unknown]
  - General physical condition abnormal [Unknown]

NARRATIVE: CASE EVENT DATE: 2017
